FAERS Safety Report 4499674-9 (Version None)
Quarter: 2004Q4

REPORT INFORMATION
  Report Type: 
  Country: None (occurrence: None)
  Receive Date: 20040928
  Receipt Date: 20040825
  Transmission Date: 20050328
  Serious: No
  Sender: FDA-Public Use
  Company Number: 04P-163-0271476-00

PATIENT
  Sex: Female

DRUGS (5)
  1. HUMIRA [Suspect]
     Dosage: 40 MG, 1 IN 1 WK, SUBCUTANEOUS
     Route: 058
  2. SUCRALFATE [Concomitant]
  3. MULTI-VITAMINS [Concomitant]
  4. TOCOPHEROL CONCENTRATE CAP [Concomitant]
  5. CYANOCOBALAMIN [Concomitant]

REACTIONS (1)
  - NAUSEA [None]
